FAERS Safety Report 8362198-2 (Version None)
Quarter: 2012Q2

REPORT INFORMATION
  Report Type: 
  Country: None (occurrence: None)
  Receive Date: 20120515
  Receipt Date: 20120514
  Transmission Date: 20120825
  Serious: Yes (Hospitalization, Other)
  Sender: FDA-Public Use
  Company Number: US-MERCK-1201USA01084

PATIENT
  Age: 65 Year
  Sex: Female

DRUGS (12)
  1. TOPROL-XL [Concomitant]
     Route: 065
     Dates: start: 19810101
  2. ALENDRONATE SODIUM [Suspect]
     Indication: OSTEOPOROSIS
     Route: 048
     Dates: start: 20100601, end: 20101201
  3. FOSAMAX [Suspect]
     Indication: OSTEOPOROSIS
     Route: 048
     Dates: start: 20020101, end: 20071101
  4. PROCARDIA [Concomitant]
     Route: 065
     Dates: start: 19810101
  5. FOSAMAX [Suspect]
     Route: 048
     Dates: start: 20080307, end: 20100616
  6. FAMOTIDINE [Concomitant]
     Route: 048
     Dates: start: 19810101
  7. ALLOPURINOL [Concomitant]
     Route: 065
     Dates: start: 19800101
  8. ADVAIR DISKUS 100/50 [Concomitant]
     Route: 065
     Dates: start: 20070101
  9. VITAMINS (UNSPECIFIED) [Concomitant]
     Route: 065
     Dates: start: 19970101
  10. FERREX [Concomitant]
     Route: 065
     Dates: start: 20010101
  11. ZOCOR [Concomitant]
     Route: 048
     Dates: start: 19810101
  12. SPIRIVA [Concomitant]
     Route: 065
     Dates: start: 20070101

REACTIONS (16)
  - FEMORAL NECK FRACTURE [None]
  - OSTEOARTHRITIS [None]
  - IDIOPATHIC THROMBOCYTOPENIC PURPURA [None]
  - FEMUR FRACTURE [None]
  - RENAL FAILURE CHRONIC [None]
  - ACOUSTIC NEUROMA [None]
  - PROTEINURIA [None]
  - ILIOTIBIAL BAND SYNDROME [None]
  - ARTHRITIS [None]
  - FALL [None]
  - PELVIC FRACTURE [None]
  - BACK PAIN [None]
  - DIVERTICULUM [None]
  - KNEE DEFORMITY [None]
  - NERVE COMPRESSION [None]
  - BLOOD CHOLESTEROL INCREASED [None]
